FAERS Safety Report 11077682 (Version 1)
Quarter: 2015Q2

REPORT INFORMATION
  Report Type: Spontaneous
  Country: FR (occurrence: FR)
  Receive Date: 20150430
  Receipt Date: 20150430
  Transmission Date: 20150821
  Serious: Yes (Hospitalization)
  Sender: FDA-Public Use
  Company Number: FR-ROCHE-1569744

PATIENT
  Age: 38 Year
  Sex: Female
  Weight: 41.1 kg

DRUGS (9)
  1. CRESTOR [Concomitant]
     Active Substance: ROSUVASTATIN CALCIUM
  2. VALPROATE [Interacting]
     Active Substance: VALPROATE SODIUM
     Indication: PRODUCT USED FOR UNKNOWN INDICATION
     Route: 042
     Dates: start: 20150403
  3. NULOJIX [Concomitant]
     Active Substance: BELATACEPT
  4. ARAVA [Concomitant]
     Active Substance: LEFLUNOMIDE
     Route: 065
  5. NOXAFIL [Concomitant]
     Active Substance: POSACONAZOLE
  6. CELLCEPT [Suspect]
     Active Substance: MYCOPHENOLATE MOFETIL\MYCOPHENOLATE MOFETIL HYDROCHLORIDE
     Indication: PRODUCT USED FOR UNKNOWN INDICATION
     Route: 042
     Dates: start: 20150327
  7. PROGRAF [Concomitant]
     Active Substance: TACROLIMUS\TACROLIMUS ANHYDROUS
     Route: 065
     Dates: end: 20150327
  8. CORTANCYL [Concomitant]
     Active Substance: PREDNISONE
     Route: 065
  9. ROVALCYTE [Concomitant]
     Active Substance: VALGANCICLOVIR HYDROCHLORIDE
     Route: 065

REACTIONS (3)
  - Drug chemical incompatibility [Recovering/Resolving]
  - Anticonvulsant drug level decreased [Recovering/Resolving]
  - Product deposit [Recovered/Resolved]

NARRATIVE: CASE EVENT DATE: 20150403
